FAERS Safety Report 4515186-8 (Version None)
Quarter: 2004Q4

REPORT INFORMATION
  Report Type: 
  Country: None (occurrence: None)
  Receive Date: 20041201
  Receipt Date: 20041123
  Transmission Date: 20050328
  Serious: Yes (Hospitalization)
  Sender: FDA-Public Use
  Company Number: US-GLAXOSMITHKLINE-A0535210A

PATIENT
  Sex: Male

DRUGS (3)
  1. FLONASE [Suspect]
     Indication: RHINITIS
     Route: 045
  2. ASPIRIN [Suspect]
     Indication: ARTHRALGIA
     Route: 065
  3. PAIN MEDICATION [Suspect]
     Indication: BACK PAIN
     Route: 065

REACTIONS (2)
  - EPISTAXIS [None]
  - HAEMORRHAGE [None]
